FAERS Safety Report 19077894 (Version 3)
Quarter: 2021Q4

REPORT INFORMATION
  Report Type: Report from Study
  Country: US (occurrence: US)
  Receive Date: 20210331
  Receipt Date: 20211125
  Transmission Date: 20220303
  Serious: Yes (Hospitalization)
  Sender: FDA-Public Use
  Company Number: US-NOVARTISTESTPH-NVSC2021US073458

PATIENT
  Sex: Female

DRUGS (1)
  1. ENTRESTO [Suspect]
     Active Substance: SACUBITRIL\VALSARTAN
     Indication: Product used for unknown indication
     Dosage: 50 MG, BID (24/26 MG)STARTED ENTRESTO APPROX 1.5 WEEKS AGO
     Route: 048

REACTIONS (5)
  - Skin ulcer [Unknown]
  - Poor peripheral circulation [Unknown]
  - Somnolence [Unknown]
  - Product dose omission issue [Unknown]
  - Feeling abnormal [Unknown]
